FAERS Safety Report 8369149-5 (Version None)
Quarter: 2012Q2

REPORT INFORMATION
  Report Type: 
  Country: None (occurrence: None)
  Receive Date: 20120518
  Receipt Date: 20120507
  Transmission Date: 20120825
  Serious: Yes (Death, Other)
  Sender: FDA-Public Use
  Company Number: FR-GENZYME-CLOF-1002143

PATIENT

DRUGS (3)
  1. CLOFARABINE [Suspect]
     Indication: ACUTE LYMPHOCYTIC LEUKAEMIA RECURRENT
     Dosage: 40 MG/M2, QD X 5 DAYS
     Route: 065
     Dates: start: 20101220
  2. NILOTINIB [Concomitant]
     Indication: ACUTE LYMPHOCYTIC LEUKAEMIA RECURRENT
     Dosage: 800 MG, QD X 14 DAYS
     Route: 065
     Dates: start: 20101220
  3. CYCLOPHOSPHAMIDE [Concomitant]
     Indication: ACUTE LYMPHOCYTIC LEUKAEMIA RECURRENT
     Dosage: 300 MG/M2, QD
     Route: 065
     Dates: start: 20101220

REACTIONS (6)
  - BRONCHOPULMONARY ASPERGILLOSIS [None]
  - ACUTE RESPIRATORY DISTRESS SYNDROME [None]
  - GASTROINTESTINAL TOXICITY [None]
  - SKIN TOXICITY [None]
  - TRANSAMINASES INCREASED [None]
  - NEUROTOXICITY [None]
